FAERS Safety Report 22537735 (Version 1)
Quarter: 2023Q2

REPORT INFORMATION
  Report Type: Spontaneous
  Country: US (occurrence: None)
  Receive Date: 20230607
  Receipt Date: 20230607
  Transmission Date: 20230721
  Serious: Yes (Death)
  Sender: FDA-Public Use
  Company Number: None

PATIENT
  Age: 77 Year
  Sex: Male

DRUGS (11)
  1. LENALIDOMIDE [Suspect]
     Active Substance: LENALIDOMIDE
     Indication: Plasma cell myeloma
     Dosage: 1CAP QD PO 21DON 7DOFF?
     Route: 050
  2. DEXAMETHASONE [Suspect]
     Active Substance: DEXAMETHASONE
     Dosage: 2T QW PO?
     Route: 048
  3. ASPIRIN [Concomitant]
  4. ATORVASTATIN [Concomitant]
  5. CARBIDOPA [Concomitant]
     Active Substance: CARBIDOPA
  6. GABAPENTIN [Concomitant]
  7. MIDODRINE [Concomitant]
  8. NITROGLYCERIN [Concomitant]
  9. OXYCODONE [Concomitant]
     Active Substance: OXYCODONE
  10. RANOLAZINE [Concomitant]
     Active Substance: RANOLAZINE
  11. NEUPRO [Concomitant]
     Active Substance: ROTIGOTINE

REACTIONS (1)
  - Death [None]

NARRATIVE: CASE EVENT DATE: 20230531
